FAERS Safety Report 23639223 (Version 1)
Quarter: 2024Q1

REPORT INFORMATION
  Report Type: Spontaneous
  Country: FR (occurrence: FR)
  Receive Date: 20240315
  Receipt Date: 20240315
  Transmission Date: 20240410
  Serious: Yes (Hospitalization, Other)
  Sender: FDA-Public Use
  Company Number: FR-AFSSAPS-PB2024000234

PATIENT
  Age: 93 Year
  Sex: Female
  Weight: 54.6 kg

DRUGS (1)
  1. AMOXICILLIN [Suspect]
     Active Substance: AMOXICILLIN
     Indication: Escherichia pyelonephritis
     Dosage: 1 GRAM, 3 TIMES A DAY
     Route: 048
     Dates: start: 20240218, end: 20240219

REACTIONS (3)
  - Drug eruption [Recovering/Resolving]
  - Cheyne-Stokes respiration [Recovered/Resolved]
  - Encephalopathy [Recovered/Resolved]

NARRATIVE: CASE EVENT DATE: 20240218
